FAERS Safety Report 25098337 (Version 3)
Quarter: 2025Q2

REPORT INFORMATION
  Report Type: Report from Study
  Country: TR (occurrence: TR)
  Receive Date: 20250320
  Receipt Date: 20250515
  Transmission Date: 20250717
  Serious: Yes (Death, Other)
  Sender: ALEXION PHARMACEUTICALS
  Company Number: TR-ASTRAZENECA-202503TUR015893TR

PATIENT
  Age: 53 Year

DRUGS (1)
  1. SOLIRIS [Suspect]
     Active Substance: ECULIZUMAB
     Indication: Atypical haemolytic uraemic syndrome

REACTIONS (5)
  - Death [Fatal]
  - Epilepsy [Unknown]
  - Brain injury [Unknown]
  - Bedridden [Unknown]
  - Obesity [Unknown]
